FAERS Safety Report 23209825 (Version 5)
Quarter: 2024Q2

REPORT INFORMATION
  Report Type: Report from Study
  Country: DE (occurrence: DE)
  Receive Date: 20231121
  Receipt Date: 20240617
  Transmission Date: 20240717
  Serious: No
  Sender: FDA-Public Use
  Company Number: DE-ROCHE-3460998

PATIENT
  Age: 45 Year
  Sex: Female

DRUGS (3)
  1. OCREVUS [Suspect]
     Active Substance: OCRELIZUMAB
     Indication: Relapsing-remitting multiple sclerosis
     Dosage: SUBSEQUENT DOSE ON 15/JAN.2024
     Route: 042
     Dates: start: 20230629
  2. FORMOTEROL FUMARATE [Concomitant]
     Active Substance: FORMOTEROL FUMARATE
  3. INCRUSE ELLIPTA [Concomitant]
     Active Substance: UMECLIDINIUM BROMIDE

REACTIONS (8)
  - Fatigue [Not Recovered/Not Resolved]
  - COVID-19 [Recovered/Resolved]
  - Memory impairment [Not Recovered/Not Resolved]
  - Feeling abnormal [Not Recovered/Not Resolved]
  - Pain in extremity [Recovered/Resolved]
  - Headache [Recovered/Resolved]
  - Nausea [Recovered/Resolved]
  - Vomiting [Recovered/Resolved]

NARRATIVE: CASE EVENT DATE: 20230629
